FAERS Safety Report 16158456 (Version 1)
Quarter: 2019Q2

REPORT INFORMATION
  Report Type: Spontaneous
  Country: US (occurrence: US)
  Receive Date: 20190403
  Receipt Date: 20190403
  Transmission Date: 20190711
  Serious: No
  Sender: FDA-Public Use
  Company Number: None

PATIENT
  Age: 67 Year
  Sex: Female

DRUGS (8)
  1. WOMENS MULTIVITAMIN GUMMIES [Concomitant]
  2. PROBIOTIC [Concomitant]
     Active Substance: PROBIOTICS NOS
  3. PREDNISOLONE/GATIFLOXACIN EYE DROPS [Suspect]
     Active Substance: GATIFLOXACIN\PREDNISOLONE
     Indication: POSTOPERATIVE CARE
     Route: 047
     Dates: start: 20181211, end: 20181220
  4. XANAX [Concomitant]
     Active Substance: ALPRAZOLAM
  5. VITAMIN B12 [Concomitant]
     Active Substance: CYANOCOBALAMIN
  6. VITAMIN C [Concomitant]
     Active Substance: ASCORBIC ACID
  7. VITAMIN D [Concomitant]
     Active Substance: VITAMIN D NOS
  8. RESERVATROL [Concomitant]

REACTIONS (9)
  - Photophobia [None]
  - Recalled product administered [None]
  - Product use complaint [None]
  - Headache [None]
  - Eye pain [None]
  - Vision blurred [None]
  - Night blindness [None]
  - Product contamination [None]
  - Liquid product physical issue [None]

NARRATIVE: CASE EVENT DATE: 20181211
